FAERS Safety Report 21697461 (Version 2)
Quarter: 2025Q2

REPORT INFORMATION
  Report Type: Report from Study
  Country: US (occurrence: US)
  Receive Date: 20221208
  Receipt Date: 20250515
  Transmission Date: 20250716
  Serious: Yes (Other)
  Sender: NOVARTIS
  Company Number: US-002147023-NVSC2022US281550

PATIENT
  Sex: Male

DRUGS (1)
  1. ENTRESTO [Suspect]
     Active Substance: SACUBITRIL\VALSARTAN
     Indication: Product used for unknown indication
     Route: 065

REACTIONS (7)
  - Coma [Unknown]
  - Neoplasm malignant [Unknown]
  - Myocardial infarction [Unknown]
  - Brain injury [Unknown]
  - Road traffic accident [Unknown]
  - Tooth fracture [Unknown]
  - Tooth loss [Unknown]
